FAERS Safety Report 20145742 (Version 1)
Quarter: 2021Q4

REPORT INFORMATION
  Report Type: Spontaneous
  Country: US (occurrence: None)
  Receive Date: 20211203
  Receipt Date: 20211203
  Transmission Date: 20220303
  Serious: No
  Sender: FDA-Public Use
  Company Number: None

PATIENT
  Age: 72 Year
  Sex: Female
  Weight: 80.55 kg

DRUGS (2)
  1. CARBOPLATIN [Suspect]
     Active Substance: CARBOPLATIN
     Dates: end: 20211026
  2. ALIMTA [Suspect]
     Active Substance: PEMETREXED DISODIUM
     Dates: end: 20211026

REACTIONS (4)
  - Dizziness [None]
  - Haemoglobin decreased [None]
  - Blood glucose increased [None]
  - Loss of personal independence in daily activities [None]

NARRATIVE: CASE EVENT DATE: 20211115
